FAERS Safety Report 21750019 (Version 1)
Quarter: 2022Q4

REPORT INFORMATION
  Report Type: Report from Study
  Country: ES (occurrence: None)
  Receive Date: 20221219
  Receipt Date: 20221219
  Transmission Date: 20230112
  Serious: Yes (Hospitalization)
  Sender: FDA-Public Use
  Company Number: ES-ROCHE-2655732

PATIENT
  Age: 71 Year
  Sex: Female
  Weight: 94.8 kg

DRUGS (28)
  1. MOSUNETUZUMAB [Suspect]
     Active Substance: MOSUNETUZUMAB
     Indication: B-cell lymphoma
     Dosage: ON 05/AUG/2020 AT 2:30 AND 07-NOV-2022 2:00 PM TO 8:17 PM, RECEIVED MOST RECENT DOSE OF BTCT4465A PR
     Route: 042
     Dates: start: 20190220
  2. MOSUNETUZUMAB [Suspect]
     Active Substance: MOSUNETUZUMAB
     Indication: Chronic lymphocytic leukaemia
  3. ATEZOLIZUMAB [Suspect]
     Active Substance: ATEZOLIZUMAB
     Indication: B-cell lymphoma
     Dosage: ON 26/AUG/2020, THE PATIENT AGAIN RESTARTED THE TREATMENT (AFTER CRS ONSET DATE)?LAST DOSE OF ATEZOL
     Route: 041
     Dates: start: 20190313
  4. ATEZOLIZUMAB [Suspect]
     Active Substance: ATEZOLIZUMAB
     Indication: Chronic lymphocytic leukaemia
  5. ACETAMINOPHEN [Concomitant]
     Active Substance: ACETAMINOPHEN
     Indication: Arthralgia
     Route: 048
  6. ACETAMINOPHEN [Concomitant]
     Active Substance: ACETAMINOPHEN
     Indication: Pain
     Route: 048
     Dates: start: 20190220, end: 20200717
  7. ACETAMINOPHEN [Concomitant]
     Active Substance: ACETAMINOPHEN
     Indication: Pyrexia
     Dates: start: 20200805, end: 20210104
  8. ACETAMINOPHEN [Concomitant]
     Active Substance: ACETAMINOPHEN
     Route: 042
     Dates: start: 20200806, end: 20200807
  9. OMEPRAZOLE [Concomitant]
     Active Substance: OMEPRAZOLE
     Indication: Gastrointestinal disorder prophylaxis
     Route: 048
  10. LORAZEPAM [Concomitant]
     Active Substance: LORAZEPAM
     Dosage: 1 CAPSULE
     Route: 048
  11. ACYCLOVIR [Concomitant]
     Active Substance: ACYCLOVIR
     Route: 048
  12. LAMIVUDINE [Concomitant]
     Active Substance: LAMIVUDINE
     Route: 048
  13. FOSFOMICINA [Concomitant]
     Indication: Antibiotic prophylaxis
     Route: 048
  14. METHYLPREDNISOLONE [Concomitant]
     Active Substance: METHYLPREDNISOLONE
     Indication: Premedication
     Route: 042
     Dates: start: 20190220, end: 20200717
  15. METHYLPREDNISOLONE [Concomitant]
     Active Substance: METHYLPREDNISOLONE
     Route: 042
     Dates: start: 20200805, end: 20200805
  16. DEXCHLORPHENIRAMINE [Concomitant]
     Active Substance: DEXCHLORPHENIRAMINE
     Indication: Premedication
     Route: 042
     Dates: start: 20190220, end: 20200717
  17. DEXCHLORPHENIRAMINE [Concomitant]
     Active Substance: DEXCHLORPHENIRAMINE
     Route: 042
     Dates: start: 20200805, end: 20210104
  18. BUDESONIDE [Concomitant]
     Active Substance: BUDESONIDE
     Indication: Bronchitis chronic
     Route: 055
  19. ACETAMINOPHEN\TRAMADOL HYDROCHLORIDE [Concomitant]
     Active Substance: ACETAMINOPHEN\TRAMADOL HYDROCHLORIDE
     Indication: Pain
     Dosage: DILIBAN 75/65MG?1 CAPSULE
     Route: 048
     Dates: start: 20190909
  20. ALLOPURINOL [Concomitant]
     Active Substance: ALLOPURINOL
     Route: 048
  21. SULFAMETHOXAZOLE\TRIMETHOPRIM [Concomitant]
     Active Substance: SULFAMETHOXAZOLE\TRIMETHOPRIM
     Route: 048
  22. PROMESTRIENE [Concomitant]
     Active Substance: PROMESTRIENE
     Dosage: DOSE 10 OTHER
     Dates: start: 20180904
  23. DICLOFENAC [Concomitant]
     Active Substance: DICLOFENAC
     Route: 048
     Dates: start: 20160926, end: 20210412
  24. MAGNESIUM [Concomitant]
     Active Substance: MAGNESIUM
     Indication: Prophylaxis
     Route: 048
     Dates: start: 20200806, end: 20200807
  25. METAMIZOL [Concomitant]
     Active Substance: METAMIZOLE SODIUM
     Indication: Pain
     Route: 042
     Dates: start: 20200806, end: 20200807
  26. FOSFOMYCIN [Concomitant]
     Active Substance: FOSFOMYCIN
     Indication: Urinary tract infection
     Route: 048
     Dates: start: 20221027, end: 20221027
  27. FOSFOMYCIN [Concomitant]
     Active Substance: FOSFOMYCIN
     Route: 048
     Dates: start: 20221030, end: 20221030
  28. AMOXICILLIN\CLAVULANATE POTASSIUM [Concomitant]
     Active Substance: AMOXICILLIN\CLAVULANATE POTASSIUM
     Indication: Cytokine release syndrome
     Route: 048
     Dates: start: 20221026, end: 20221027

REACTIONS (2)
  - Cytokine release syndrome [Recovered/Resolved]
  - Cytokine release syndrome [Recovered/Resolved]

NARRATIVE: CASE EVENT DATE: 20200806
